FAERS Safety Report 6657173 (Version 3)
Quarter: 2017Q4

REPORT INFORMATION
  Report Type: Spontaneous
  Country: JP (occurrence: JP)
  Receive Date: 20080604
  Receipt Date: 20171127
  Transmission Date: 20180321
  Serious: Yes (Disabling, Other)
  Sender: FDA-Public Use
  Company Number: JP-PFIZER INC-2008045999

PATIENT
  Age: 73 Year
  Sex: Female
  Weight: 58 kg

DRUGS (14)
  1. TRACLEER [Suspect]
     Active Substance: BOSENTAN
     Indication: PULMONARY HYPERTENSION
     Dosage: 72.5 MG, 2X/DAY
     Route: 048
     Dates: start: 20080410, end: 20080421
  2. GASTER [Concomitant]
     Active Substance: FAMOTIDINE
     Indication: GASTROINTESTINAL DISORDER
     Dosage: 20 MG, 1X/DAY
     Route: 048
  3. SELBEX [Concomitant]
     Active Substance: TEPRENONE
     Indication: GASTROINTESTINAL DISORDER
     Dosage: 0.5 G, 2X/DAY
     Route: 048
  4. METHYCOBAL [Concomitant]
     Active Substance: METHYLCOBALAMIN
     Indication: MEDIAN NERVE INJURY
     Dosage: 500 UG, 2X/DAY
     Route: 048
  5. DORNER [Concomitant]
     Active Substance: BERAPROST SODIUM
     Indication: PULMONARY HYPERTENSION
     Dosage: 20 UG, 2X/DAY
     Route: 048
     Dates: end: 20080324
  6. DORNER [Concomitant]
     Active Substance: BERAPROST SODIUM
     Dosage: 20 UG, 3X/DAY
     Route: 048
     Dates: start: 20080325, end: 20080326
  7. TRACLEER [Suspect]
     Active Substance: BOSENTAN
     Dosage: 125 MG, 2X/DAY
     Route: 048
     Dates: start: 20080421, end: 20080523
  8. DORNER [Concomitant]
     Active Substance: BERAPROST SODIUM
     Dosage: 40 UG, 3X/DAY
     Route: 048
     Dates: start: 20080327
  9. WARFARIN [Concomitant]
     Active Substance: WARFARIN
     Dosage: 3 MG, 1X/DAY
     Route: 048
     Dates: start: 20080418, end: 20080428
  10. WARFARIN [Concomitant]
     Active Substance: WARFARIN
     Dosage: 3.5 MG, 1X/DAY
     Route: 048
     Dates: start: 20080429
  11. REVATIO [Suspect]
     Active Substance: SILDENAFIL CITRATE
     Indication: PULMONARY HYPERTENSION
     Dosage: 20 MG, 3X/DAY
     Route: 048
     Dates: start: 20080507
  12. KALGUT [Concomitant]
     Active Substance: DENOPAMINE
     Indication: CARDIAC FAILURE
     Dosage: 5 MG, 2X/DAY
     Route: 048
  13. WARFARIN [Concomitant]
     Active Substance: WARFARIN
     Indication: PULMONARY EMBOLISM
     Dosage: 3 MG, 1X/DAY
     Route: 048
     Dates: end: 20080328
  14. WARFARIN [Concomitant]
     Active Substance: WARFARIN
     Dosage: 2.5 MG, 1X/DAY
     Route: 048
     Dates: start: 20080329, end: 20080417

REACTIONS (8)
  - Alanine aminotransferase increased [Recovering/Resolving]
  - Headache [Recovered/Resolved]
  - Vitreous detachment [Unknown]
  - Blood lactate dehydrogenase increased [Unknown]
  - Vitreous floaters [Not Recovered/Not Resolved]
  - Aspartate aminotransferase increased [Recovering/Resolving]
  - Intercostal neuralgia [Recovering/Resolving]
  - Diarrhoea [Recovering/Resolving]

NARRATIVE: CASE EVENT DATE: 20080508
